FAERS Safety Report 5196008-1 (Version None)
Quarter: 2007Q1

REPORT INFORMATION
  Report Type: 
  Country: None (occurrence: None)
  Receive Date: 20070102
  Receipt Date: 20061226
  Transmission Date: 20070707
  Serious: Yes (Death)
  Sender: FDA-Public Use
  Company Number: IL-NOVOPROD-259544

PATIENT
  Age: 51 Year
  Sex: Female

DRUGS (3)
  1. NOVOSEVEN [Suspect]
     Indication: HAEMORRHAGE
     Dosage: 9.6 MG, QD
     Dates: start: 20061226
  2. BLOOD CELLS, PACKED HUMAN [Concomitant]
     Dosage: 22 U, UNK
     Dates: start: 20061226
  3. PLATELETS [Concomitant]
     Dates: start: 20061226

REACTIONS (3)
  - HAEMORRHAGE [None]
  - IATROGENIC INJURY [None]
  - SURGICAL PROCEDURE REPEATED [None]
